FAERS Safety Report 12780011 (Version 1)
Quarter: 2016Q3

REPORT INFORMATION
  Report Type: Spontaneous
  Country: GB (occurrence: GB)
  Receive Date: 20160926
  Receipt Date: 20160926
  Transmission Date: 20161109
  Serious: Yes (Other)
  Sender: FDA-Public Use
  Company Number: ALCN2016GB006510

PATIENT
  Age: 71 Year
  Sex: Female
  Weight: 58.96 kg

DRUGS (2)
  1. LEVOTHYROXINE SODIUM. [Concomitant]
     Active Substance: LEVOTHYROXINE SODIUM
     Indication: PRODUCT USED FOR UNKNOWN INDICATION
     Dosage: UNK
     Route: 065
  2. HYPROMELLOSE [Suspect]
     Active Substance: HYPROMELLOSES
     Indication: DRY EYE
     Dosage: UNK
     Route: 047
     Dates: start: 20160728, end: 20160818

REACTIONS (5)
  - Hypersensitivity [Recovering/Resolving]
  - Eye pain [Recovering/Resolving]
  - Reaction to drug excipients [Unknown]
  - Eye irritation [Recovering/Resolving]
  - Product substitution issue [Unknown]
